FAERS Safety Report 7759705-7 (Version None)
Quarter: 2011Q3

REPORT INFORMATION
  Report Type: 
  Country: None (occurrence: None)
  Receive Date: 20110919
  Receipt Date: 20110913
  Transmission Date: 20111222
  Serious: Yes (Other)
  Sender: FDA-Public Use
  Company Number: JP-ABBOTT-11P-087-0710372-00

PATIENT
  Sex: Male
  Weight: 52 kg

DRUGS (14)
  1. HUMIRA [Suspect]
     Indication: CROHN'S DISEASE
     Route: 058
     Dates: start: 20110203, end: 20110203
  2. CLOSTRIDIUM BUTYRICUM COMBINED DRUG [Concomitant]
     Indication: CROHN'S DISEASE
  3. NATURAL ALUMINUM SILICATE [Concomitant]
     Indication: CROHN'S DISEASE
  4. REBAMIPIDE [Concomitant]
     Indication: GASTRITIS
     Route: 048
     Dates: start: 20101216
  5. MESALAMINE [Concomitant]
     Indication: CROHN'S DISEASE
     Route: 048
     Dates: start: 20100701
  6. AZATHIOPRINE [Concomitant]
     Indication: CROHN'S DISEASE
     Route: 048
     Dates: start: 20100701
  7. ALBUMIN TANNATE [Concomitant]
     Indication: CROHN'S DISEASE
  8. ACETAMINOPHEN [Concomitant]
     Indication: PYREXIA
     Route: 048
     Dates: start: 20101216
  9. NATURAL ALUMINUM SILICATE [Concomitant]
     Indication: DIARRHOEA
     Route: 048
     Dates: start: 20100701
  10. HUMIRA [Suspect]
     Dates: start: 20110217, end: 20110217
  11. HUMIRA [Suspect]
     Dates: start: 20110303
  12. CLOSTRIDIUM BUTYRICUM COMBINED DRUG [Concomitant]
     Indication: DIARRHOEA
     Route: 048
     Dates: start: 20100701
  13. ALBUMIN TANNATE [Concomitant]
     Indication: DIARRHOEA
     Route: 048
     Dates: start: 20100701
  14. TPN [Concomitant]
     Indication: NUTRITIONAL SUPPORT
     Route: 048
     Dates: start: 20101118

REACTIONS (2)
  - ABDOMINAL PAIN LOWER [None]
  - INTESTINAL OBSTRUCTION [None]
